FAERS Safety Report 5867219-4 (Version None)
Quarter: 2008Q3

REPORT INFORMATION
  Report Type: 
  Country: None (occurrence: None)
  Receive Date: 20080829
  Receipt Date: 20080829
  Transmission Date: 20090109
  Serious: Yes (Other)
  Sender: FDA-Public Use
  Company Number: None

PATIENT
  Sex: Male
  Weight: 59.4212 kg

DRUGS (1)
  1. FOSCARNET [Suspect]
     Dosage: 8750 MG Q12H IV
     Dates: start: 20080808, end: 20080815

REACTIONS (2)
  - ATAXIA [None]
  - CONFUSIONAL STATE [None]
